FAERS Safety Report 5821401-0 (Version None)
Quarter: 2008Q3

REPORT INFORMATION
  Report Type: 
  Country: None (occurrence: None)
  Receive Date: 20080722
  Receipt Date: 20080722
  Transmission Date: 20090109
  Serious: No
  Sender: FDA-Public Use
  Company Number: None

PATIENT
  Sex: Female

DRUGS (2)
  1. ZYPREXA [Suspect]
     Dosage: ZYPREXA  10  IM
     Route: 030
     Dates: start: 20080501, end: 20080721
  2. ZYPREXA [Suspect]
     Dosage: ZYPREXA 20  PO
     Route: 048

REACTIONS (1)
  - BLOOD GLUCOSE INCREASED [None]
